FAERS Safety Report 4825637-7 (Version None)
Quarter: 2005Q4

REPORT INFORMATION
  Report Type: 
  Country: None (occurrence: None)
  Receive Date: 20051111
  Receipt Date: 20051031
  Transmission Date: 20060501
  Serious: Yes (Hospitalization, Other)
  Sender: FDA-Public Use
  Company Number: NO-MERCK-0511NOR00006

PATIENT
  Age: 74 Year
  Sex: Female

DRUGS (7)
  1. VIOXX [Suspect]
     Indication: OSTEOARTHRITIS
     Route: 048
     Dates: start: 20010702, end: 20010801
  2. VIOXX [Suspect]
     Route: 048
     Dates: start: 20020227, end: 20020701
  3. VIOXX [Suspect]
     Route: 048
     Dates: start: 20021216, end: 20040101
  4. ASPIRIN AND MAGNESIUM OXIDE [Concomitant]
     Route: 048
  5. NAPROXEN [Concomitant]
     Route: 048
     Dates: start: 20010807
  6. SIMVASTATIN [Concomitant]
     Indication: HYPERCHOLESTEROLAEMIA
     Route: 048
     Dates: start: 20011101
  7. ZOPICLONE [Concomitant]
     Route: 065

REACTIONS (5)
  - ANGINA PECTORIS [None]
  - DRUG INEFFECTIVE [None]
  - MYOCARDIAL INFARCTION [None]
  - SYSTEMIC LUPUS ERYTHEMATOSUS [None]
  - VESTIBULAR NEURONITIS [None]
